FAERS Safety Report 25932080 (Version 1)
Quarter: 2025Q4

REPORT INFORMATION
  Report Type: Spontaneous
  Country: EU (occurrence: EU)
  Receive Date: 20251016
  Receipt Date: 20251016
  Transmission Date: 20260117
  Serious: Yes (Hospitalization)
  Sender: MERCK SHARP & DOHME LLC
  Company Number: None

PATIENT
  Age: 64 Year
  Sex: Female
  Weight: 58.9 kg

DRUGS (2)
  1. PREVYMIS [Interacting]
     Active Substance: LETERMOVIR
     Indication: Cytomegalovirus infection
     Dosage: STRENGTH: 480MG
     Route: 048
     Dates: start: 20250819, end: 20250905
  2. PROGRAF [Interacting]
     Active Substance: TACROLIMUS
     Indication: Lung transplant
     Route: 048
     Dates: end: 20250826

REACTIONS (2)
  - Immunosuppressant drug level increased [Recovered/Resolved]
  - Drug interaction [Recovered/Resolved]

NARRATIVE: CASE EVENT DATE: 20250827
